FAERS Safety Report 9323058 (Version 1)
Quarter: 2013Q2

REPORT INFORMATION
  Report Type: Spontaneous
  Country: CA (occurrence: CA)
  Receive Date: 20130603
  Receipt Date: 20130603
  Transmission Date: 20140414
  Serious: Yes (Other)
  Sender: FDA-Public Use
  Company Number: CA-AMGEN-CANSP2013038558

PATIENT
  Age: 83 Year
  Sex: Female

DRUGS (2)
  1. PROLIA [Suspect]
     Indication: OSTEOPOROSIS
     Dosage: 60 UNK, Q6MO
     Route: 058
     Dates: start: 201112
  2. DIURETICS [Concomitant]

REACTIONS (2)
  - Cardiac failure congestive [Unknown]
  - Atrial fibrillation [Unknown]
